FAERS Safety Report 7439945-7 (Version None)
Quarter: 2011Q2

REPORT INFORMATION
  Report Type: 
  Country: None (occurrence: None)
  Receive Date: 20110427
  Receipt Date: 20091122
  Transmission Date: 20111010
  Serious: Yes (Death, Other)
  Sender: FDA-Public Use
  Company Number: US-BAYER-200940710NA

PATIENT
  Age: 62 Year
  Sex: Male
  Weight: 83.9 kg

DRUGS (6)
  1. TRASYLOL [Suspect]
     Indication: CORONARY ARTERY BYPASS
     Dosage: UNK
     Route: 042
     Dates: start: 19980908
  2. LASIX [Concomitant]
  3. LOPRESSOR [Concomitant]
  4. HEPARIN [Concomitant]
  5. ACETYLSALICYLIC ACID SRT [Concomitant]
  6. MEVACOR [Concomitant]

REACTIONS (13)
  - UNEVALUABLE EVENT [None]
  - MULTI-ORGAN FAILURE [None]
  - EMOTIONAL DISTRESS [None]
  - ANXIETY [None]
  - RENAL IMPAIRMENT [None]
  - RENAL FAILURE [None]
  - FEAR [None]
  - RENAL INJURY [None]
  - STRESS [None]
  - PAIN [None]
  - INJURY [None]
  - DEATH [None]
  - ANHEDONIA [None]
